FAERS Safety Report 9921110 (Version 3)
Quarter: 2014Q2

REPORT INFORMATION
  Report Type: Spontaneous
  Country: DE (occurrence: DE)
  Receive Date: 20140225
  Receipt Date: 20140401
  Transmission Date: 20141212
  Serious: Yes (Other)
  Sender: FDA-Public Use
  Company Number: DE-JNJFOC-20140213821

PATIENT
  Age: 50 Year
  Sex: Male
  Weight: 84.81 kg

DRUGS (2)
  1. XARELTO [Suspect]
     Indication: EMBOLISM VENOUS
     Route: 048
     Dates: start: 20130924, end: 20140130
  2. XARELTO [Suspect]
     Indication: VENOUS THROMBOSIS LIMB
     Route: 048
     Dates: start: 20130924, end: 20140130

REACTIONS (2)
  - Deep vein thrombosis [Unknown]
  - Disease progression [Unknown]
